FAERS Safety Report 4952738-5 (Version None)
Quarter: 2006Q1

REPORT INFORMATION
  Report Type: 
  Country: None (occurrence: None)
  Receive Date: 20060320
  Receipt Date: 20000310
  Transmission Date: 20060701
  Serious: Yes (Other)
  Sender: FDA-Public Use
  Company Number: 2006035550

PATIENT
  Sex: Male

DRUGS (1)
  1. DILANTIN [Suspect]
     Indication: ILL-DEFINED DISORDER
     Dates: start: 19860101

REACTIONS (4)
  - HEPATIC CIRRHOSIS [None]
  - HEPATIC NEOPLASM [None]
  - HEPATITIS C [None]
  - HEPATITIS POST TRANSFUSION [None]
